FAERS Safety Report 6670678-0 (Version None)
Quarter: 2010Q2

REPORT INFORMATION
  Report Type: 
  Country: None (occurrence: None)
  Receive Date: 20100407
  Receipt Date: 20100325
  Transmission Date: 20101027
  Serious: Yes (Hospitalization, Other)
  Sender: FDA-Public Use
  Company Number: PL-PFIZER INC-2010038249

PATIENT
  Sex: Female

DRUGS (3)
  1. METHYLPREDNISOLONE [Suspect]
     Indication: LICHENOID KERATOSIS
     Dosage: 500 MG, DAILY
  2. HYDROCORTISONE [Suspect]
     Indication: LICHENOID KERATOSIS
     Dosage: 400 MG, DAILY
  3. PREDNISONE [Suspect]
     Indication: LICHENOID KERATOSIS
     Dosage: 50 MG, DAILY

REACTIONS (2)
  - DRUG INEFFECTIVE [None]
  - SYSTEMIC LUPUS ERYTHEMATOSUS [None]
